FAERS Safety Report 6481334-6 (Version None)
Quarter: 2009Q4

REPORT INFORMATION
  Report Type: 
  Country: None (occurrence: None)
  Receive Date: 20091208
  Receipt Date: 20091202
  Transmission Date: 20100525
  Serious: Yes (Life-Threatening)
  Sender: FDA-Public Use
  Company Number: B0599821A

PATIENT
  Sex: Female
  Weight: 51.5 kg

DRUGS (2)
  1. LAPATINIB [Suspect]
     Indication: BREAST CANCER
     Dosage: 1500MG PER DAY
     Route: 048
     Dates: start: 20090728
  2. PACLITAXEL [Suspect]
     Indication: BREAST CANCER
     Dosage: 80MGM2 WEEKLY
     Route: 042
     Dates: start: 20090728

REACTIONS (4)
  - DYSPNOEA EXERTIONAL [None]
  - HYDROTHORAX [None]
  - PULMONARY EMBOLISM [None]
  - TUBERCULOUS PLEURISY [None]
